FAERS Safety Report 6742739-9 (Version None)
Quarter: 2010Q2

REPORT INFORMATION
  Report Type: 
  Country: None (occurrence: None)
  Receive Date: 20100526
  Receipt Date: 20091110
  Transmission Date: 20101027
  Serious: No
  Sender: FDA-Public Use
  Company Number: US-ABBOTT-09P-163-0608445-00

PATIENT
  Sex: Male

DRUGS (3)
  1. ZEMPLAR [Suspect]
     Indication: HYPERPARATHYROIDISM SECONDARY
     Dates: start: 20090805
  2. ZEMPLAR [Suspect]
     Indication: RENAL FAILURE CHRONIC
     Dates: start: 20090801, end: 20091001
  3. ZEMPLAR [Suspect]
     Indication: BLOOD PARATHYROID HORMONE
     Dates: start: 20091001

REACTIONS (2)
  - BLOOD PARATHYROID HORMONE ABNORMAL [None]
  - INCORRECT DOSE ADMINISTERED [None]
